FAERS Safety Report 18335053 (Version 1)
Quarter: 2020Q4

REPORT INFORMATION
  Report Type: Spontaneous
  Country: GR (occurrence: GR)
  Receive Date: 20201001
  Receipt Date: 20201001
  Transmission Date: 20210113
  Serious: Yes (Disabling)
  Sender: FDA-Public Use
  Company Number: GR-PFIZER INC-2020374069

PATIENT
  Age: 56 Year
  Sex: Male
  Weight: 104 kg

DRUGS (6)
  1. ATORVASTATIN CALCIUM. [Suspect]
     Active Substance: ATORVASTATIN CALCIUM
     Dosage: 40 MG, 1X/DAY
     Route: 048
     Dates: start: 2015, end: 2016
  2. ATORVASTATIN CALCIUM. [Suspect]
     Active Substance: ATORVASTATIN CALCIUM
     Indication: CORONARY ARTERY DISEASE
     Dosage: 20 MG, 1X/DAY
     Route: 048
     Dates: start: 2015, end: 2016
  3. EZETIMIBE. [Suspect]
     Active Substance: EZETIMIBE
     Indication: CORONARY ARTERY DISEASE
     Dosage: 10 MG, 1X/DAY
     Route: 048
     Dates: start: 2018, end: 2020
  4. FENOFIBRATE. [Suspect]
     Active Substance: FENOFIBRATE
     Indication: CORONARY ARTERY DISEASE
     Dosage: 145 MG, 1X/DAY
     Route: 048
     Dates: start: 2016, end: 2016
  5. SIMVASTATIN. [Suspect]
     Active Substance: SIMVASTATIN
     Indication: CORONARY ARTERY DISEASE
     Dosage: 40 MG, 1X/DAY
     Route: 048
     Dates: start: 2018, end: 2019
  6. ROSUVASTATIN. [Suspect]
     Active Substance: ROSUVASTATIN
     Indication: CORONARY ARTERY DISEASE
     Dosage: 20 MG, 1X/DAY
     Route: 048
     Dates: start: 2016, end: 2018

REACTIONS (2)
  - Hypertransaminasaemia [Recovered/Resolved]
  - Myopathy [Recovered/Resolved]

NARRATIVE: CASE EVENT DATE: 201506
